FAERS Safety Report 6723354-X (Version None)
Quarter: 2010Q2

REPORT INFORMATION
  Report Type: 
  Country: None (occurrence: None)
  Receive Date: 20100511
  Receipt Date: 20100503
  Transmission Date: 20101027
  Serious: No
  Sender: FDA-Public Use
  Company Number: 011302

PATIENT
  Sex: Female

DRUGS (4)
  1. ROTIGOTINE (ROTIGOTINE) [Suspect]
  2. CARBILEV [Concomitant]
  3. ALIZAM [Concomitant]
  4. ANAFRANIL [Concomitant]

REACTIONS (1)
  - DEATH [None]
